FAERS Safety Report 7722635-0 (Version None)
Quarter: 2011Q3

REPORT INFORMATION
  Report Type: 
  Country: None (occurrence: None)
  Receive Date: 20110831
  Receipt Date: 20110826
  Transmission Date: 20111222
  Serious: Yes (Hospitalization)
  Sender: FDA-Public Use
  Company Number: US-MERCK-1106USA02749

PATIENT
  Age: 53 Year
  Sex: Female

DRUGS (7)
  1. FOSAMAX [Suspect]
     Indication: OSTEOPOROSIS
     Route: 048
     Dates: start: 19930801, end: 19990801
  2. FOSAMAX [Suspect]
     Route: 048
     Dates: start: 19990801, end: 20020701
  3. FOSAMAX [Suspect]
     Route: 048
     Dates: start: 19990801, end: 20020701
  4. EVISTA [Concomitant]
     Indication: OSTEOPENIA
     Route: 065
     Dates: start: 19990701, end: 20020301
  5. FOSAMAX [Suspect]
     Route: 048
     Dates: start: 20020701, end: 20100501
  6. FOSAMAX [Suspect]
     Route: 048
     Dates: start: 20020701, end: 20100501
  7. FOSAMAX [Suspect]
     Indication: OSTEOPENIA
     Route: 048
     Dates: start: 19930801, end: 19990801

REACTIONS (4)
  - FEMUR FRACTURE [None]
  - HERPES ZOSTER [None]
  - ADVERSE EVENT [None]
  - BLOOD CHOLESTEROL INCREASED [None]
